FAERS Safety Report 6251102-9 (Version None)
Quarter: 2009Q2

REPORT INFORMATION
  Report Type: 
  Country: None (occurrence: None)
  Receive Date: 20090630
  Receipt Date: 20090625
  Transmission Date: 20091009
  Serious: No
  Sender: FDA-Public Use
  Company Number: US-B.I. PHARMACEUTICALS,INC./RIDGEFIELD-2005-BP-16866BP

PATIENT
  Sex: Female

DRUGS (4)
  1. SPIRIVA [Suspect]
     Indication: CHRONIC OBSTRUCTIVE PULMONARY DISEASE
     Dosage: 18 MCG
     Route: 055
     Dates: start: 20050101
  2. SPIRIVA [Suspect]
     Indication: EMPHYSEMA
  3. ATENOLOL [Concomitant]
     Indication: HYPERTENSION
  4. EYE DROPS [Concomitant]
     Indication: GLAUCOMA

REACTIONS (5)
  - ARTHRITIS [None]
  - DYSPHONIA [None]
  - DYSPNOEA [None]
  - GLOSSITIS [None]
  - PHARYNGEAL OEDEMA [None]
